FAERS Safety Report 9916169 (Version 1)
Quarter: 2014Q1

REPORT INFORMATION
  Report Type: Spontaneous
  Country: DE (occurrence: DE)
  Receive Date: 20140221
  Receipt Date: 20140221
  Transmission Date: 20141002
  Serious: Yes (Other)
  Sender: FDA-Public Use
  Company Number: DE-JNJFOC-20140204198

PATIENT
  Age: 8 Decade
  Sex: Male

DRUGS (1)
  1. REMINYL [Suspect]
     Indication: ACCIDENTAL EXPOSURE TO PRODUCT
     Dosage: 3 TO 5 CAPSULES
     Route: 048
     Dates: start: 20140206, end: 20140206

REACTIONS (4)
  - Wrong drug administered [Unknown]
  - Accidental overdose [Unknown]
  - Nightmare [Unknown]
  - Malaise [Unknown]
